FAERS Safety Report 4353571-8 (Version None)
Quarter: 2004Q2

REPORT INFORMATION
  Report Type: 
  Country: None (occurrence: None)
  Receive Date: 20040505
  Receipt Date: 20040407
  Transmission Date: 20050107
  Serious: Yes (Hospitalization)
  Sender: FDA-Public Use
  Company Number: FR-GLAXOSMITHKLINE-B0329193A

PATIENT
  Age: 5 Year
  Sex: Female

DRUGS (9)
  1. BECOTIDE [Suspect]
     Indication: ASTHMA
     Dosage: 1PUFF PER DAY
     Route: 055
     Dates: start: 20010915
  2. SEREVENT [Suspect]
     Indication: ASTHMA
     Dosage: 1PUFF TWICE PER DAY
     Route: 055
     Dates: start: 20010915
  3. NASONEX [Suspect]
     Dosage: 1UNIT TWICE PER DAY
     Route: 045
     Dates: start: 20031015
  4. ZECLAR [Suspect]
     Route: 048
     Dates: start: 20040301, end: 20040301
  5. AERIUS [Concomitant]
     Dosage: 2.5ML PER DAY
     Route: 048
     Dates: end: 20040318
  6. DEBRIDAT [Concomitant]
     Dates: start: 20040301, end: 20040301
  7. ADVIL [Concomitant]
     Dates: start: 20040301, end: 20040301
  8. ACETAMINOPHEN [Concomitant]
     Dates: start: 20040301, end: 20040301
  9. HEXASPRAY [Concomitant]
     Dates: start: 20040301, end: 20040301

REACTIONS (12)
  - DIPLOPIA [None]
  - DRUG LEVEL INCREASED [None]
  - HEADACHE [None]
  - IIIRD NERVE PARALYSIS [None]
  - INTRACRANIAL PRESSURE INCREASED [None]
  - LIMB DISCOMFORT [None]
  - PHARYNGITIS [None]
  - PHARYNGOLARYNGEAL PAIN [None]
  - PYREXIA [None]
  - STRABISMUS [None]
  - VISION BLURRED [None]
  - VOMITING [None]
